FAERS Safety Report 5024381-3 (Version None)
Quarter: 2006Q2

REPORT INFORMATION
  Report Type: 
  Country: None (occurrence: None)
  Receive Date: 20060426
  Receipt Date: 20060303
  Transmission Date: 20061013
  Serious: Yes (Other)
  Sender: FDA-Public Use
  Company Number: 2006032987

PATIENT
  Age: 76 Year
  Sex: Female
  Weight: 74.8435 kg

DRUGS (10)
  1. LYRICA [Suspect]
     Indication: NEUROPATHY PERIPHERAL
     Dates: start: 20060101
  2. PACERONE [Concomitant]
  3. WARFARIN SODIUM [Concomitant]
  4. PAXIL [Concomitant]
  5. TOPROL-XL [Concomitant]
  6. LORTAB [Concomitant]
  7. LISINOPRIL [Concomitant]
  8. SPIRIVA [Concomitant]
  9. AMARYL [Concomitant]
  10. IMDUR [Concomitant]

REACTIONS (7)
  - CONFUSIONAL STATE [None]
  - FALL [None]
  - HYPERSOMNIA [None]
  - INTERNATIONAL NORMALISED RATIO INCREASED [None]
  - LETHARGY [None]
  - MOBILITY DECREASED [None]
  - MUSCULAR WEAKNESS [None]
